FAERS Safety Report 23955078 (Version 1)
Quarter: 2024Q2

REPORT INFORMATION
  Report Type: Report from Study
  Country: US (occurrence: US)
  Receive Date: 20240610
  Receipt Date: 20240610
  Transmission Date: 20240716
  Serious: No
  Sender: FDA-Public Use
  Company Number: US-DECIPHERA PHARMACEUTICALS LLC-2024US000498

PATIENT
  Age: 47 Year
  Sex: Male

DRUGS (2)
  1. QINLOCK [Suspect]
     Active Substance: RIPRETINIB
     Indication: Abdominal neoplasm
     Dosage: 150 MILLIGRAM, QD
     Route: 048
     Dates: start: 20230531, end: 20240401
  2. QINLOCK [Suspect]
     Active Substance: RIPRETINIB
     Dosage: UNK (INCREASED THE DOSAGE)
     Route: 048
     Dates: start: 20240402

REACTIONS (2)
  - Feeling abnormal [Recovered/Resolved]
  - Adverse event [Recovered/Resolved]

NARRATIVE: CASE EVENT DATE: 20240401
